FAERS Safety Report 24576429 (Version 2)
Quarter: 2025Q1

REPORT INFORMATION
  Report Type: Spontaneous
  Country: US (occurrence: US)
  Receive Date: 20241104
  Receipt Date: 20250110
  Transmission Date: 20250408
  Serious: No
  Sender: BRISTOL-MYERS SQUIBB COMPANY
  Company Number: US-BRISTOL-MYERS SQUIBB COMPANY-2024-172162

PATIENT
  Age: 73 Year
  Sex: Female
  Weight: 49.1 kg

DRUGS (1)
  1. REVLIMID [Suspect]
     Active Substance: LENALIDOMIDE
     Indication: Plasma cell myeloma
     Route: 048
     Dates: start: 20240425

REACTIONS (4)
  - Muscle spasms [Unknown]
  - Respiratory disorder [Unknown]
  - Constipation [Unknown]
  - Dizziness [Unknown]
